FAERS Safety Report 9828342 (Version 2)
Quarter: 2014Q3

REPORT INFORMATION
  Report Type: Report from Study
  Country: US (occurrence: US)
  Receive Date: 20140117
  Receipt Date: 20140804
  Transmission Date: 20150326
  Serious: Yes (Hospitalization)
  Sender: FDA-Public Use
  Company Number: PHHO2014US000686

PATIENT
  Age: 61 Year
  Sex: Male
  Weight: 91.4 kg

DRUGS (8)
  1. ENALAPRIL [Suspect]
     Active Substance: ENALAPRIL
     Indication: CARDIAC FAILURE CHRONIC
     Dosage: 10 MG, BID
     Route: 048
     Dates: end: 20140104
  2. FUROSEMIDE. [Concomitant]
     Active Substance: FUROSEMIDE
     Indication: DIURETIC THERAPY
     Dosage: 40 MG, UNK
     Dates: end: 20140104
  3. LEVOTHYROXINE [Concomitant]
     Active Substance: LEVOTHYROXINE
     Indication: HYPOTHYROIDISM
     Dosage: UNK
  4. COREG [Suspect]
     Active Substance: CARVEDILOL
     Indication: CARDIAC FAILURE
     Dosage: 25
     Dates: end: 20140104
  5. COREG [Suspect]
     Active Substance: CARVEDILOL
     Indication: HYPERTENSION
  6. WARFARIN [Concomitant]
     Active Substance: WARFARIN
     Dosage: 5 MG, UNK
  7. INSULIN [Concomitant]
     Active Substance: INSULIN NOS
     Dosage: 25 MG, UNK
  8. AMLODIPINE [Suspect]
     Active Substance: AMLODIPINE BESYLATE
     Indication: HYPERTENSION
     Dosage: 5 MG, UNK
     Dates: end: 20140104

REACTIONS (3)
  - Hypotension [Recovered/Resolved]
  - Lung neoplasm malignant [Not Recovered/Not Resolved]
  - Superior vena cava syndrome [Recovered/Resolved]

NARRATIVE: CASE EVENT DATE: 20140104
